FAERS Safety Report 8398069-5 (Version None)
Quarter: 2012Q1

REPORT INFORMATION
  Report Type: 
  Country: None (occurrence: None)
  Receive Date: 20120323
  Receipt Date: 20110112
  Transmission Date: 20120608
  Serious: Yes (Hospitalization)
  Sender: FDA-Public Use
  Company Number: 163-21880-11011333

PATIENT
  Age: 65 Year
  Sex: Male

DRUGS (2)
  1. REVLIMID [Suspect]
     Dosage: 25;10 MG, 1 IN 1 D,DAILY FOR 3 WEEKS ON 1 WEEK OFF, PO
     Route: 048
     Dates: start: 20080401
  2. REVLIMID [Suspect]
     Dosage: 25;10 MG, 1 IN 1 D,DAILY FOR 3 WEEKS ON 1 WEEK OFF, PO
     Route: 048
     Dates: start: 20091201

REACTIONS (1)
  - SINUSITIS FUNGAL [None]
